FAERS Safety Report 7305084-9 (Version None)
Quarter: 2011Q1

REPORT INFORMATION
  Report Type: 
  Country: None (occurrence: None)
  Receive Date: 20110222
  Receipt Date: 20110215
  Transmission Date: 20110831
  Serious: Yes (Hospitalization)
  Sender: FDA-Public Use
  Company Number: DE-SHIRE-SPV1-2011-00226

PATIENT
  Sex: Female
  Weight: 73 kg

DRUGS (6)
  1. SIMVASTATIN [Concomitant]
     Indication: HYPERCHOLESTEROLAEMIA
     Dosage: 10 MG, 1X/DAY:QD
     Route: 048
     Dates: start: 20100201
  2. VPRIV [Suspect]
     Indication: GAUCHER'S DISEASE
     Dosage: 4400 IU, 1X/2WKS
     Route: 041
     Dates: start: 20100429, end: 20110208
  3. BLOPRESS [Concomitant]
     Indication: HYPERTENSION
     Dosage: 16 MG, 1X/DAY:QD
     Route: 048
     Dates: start: 20100201
  4. FOLIC ACID [Concomitant]
     Indication: PRODUCT USED FOR UNKNOWN INDICATION
     Dosage: 5 MG, 1X/DAY:QD
     Route: 048
     Dates: start: 20100201
  5. LOGIMAT [Concomitant]
     Indication: HYPERTENSION
     Dosage: 5 MG, 1X/DAY:QD
     Route: 048
     Dates: start: 20080201
  6. MARCUMAR [Concomitant]
     Indication: PRODUCT USED FOR UNKNOWN INDICATION
     Dosage: 1 DF, 1X/DAY:QD
     Route: 048
     Dates: start: 20100201

REACTIONS (17)
  - VOMITING [None]
  - SNEEZING [None]
  - MUSCULAR WEAKNESS [None]
  - SUBCLAVIAN ARTERY STENOSIS [None]
  - PALPITATIONS [None]
  - INFUSION RELATED REACTION [None]
  - ERYTHEMA [None]
  - TREMOR [None]
  - VERTIGO POSITIONAL [None]
  - WALKING DISABILITY [None]
  - CEREBELLAR INFARCTION [None]
  - HEADACHE [None]
  - RHINORRHOEA [None]
  - HOT FLUSH [None]
  - NASAL CONGESTION [None]
  - BACK PAIN [None]
  - DIZZINESS [None]
